FAERS Safety Report 5019719-7 (Version None)
Quarter: 2006Q2

REPORT INFORMATION
  Report Type: 
  Country: None (occurrence: None)
  Receive Date: 20060601
  Receipt Date: 20060522
  Transmission Date: 20061013
  Serious: Yes (Hospitalization)
  Sender: FDA-Public Use
  Company Number: 2006067854

PATIENT
  Age: 49 Year
  Sex: Female
  Weight: 54 kg

DRUGS (1)
  1. SUTENT [Suspect]
     Indication: RENAL CELL CARCINOMA STAGE UNSPECIFIED
     Dosage: 50 MG (50 MG, QD-INTERVAL:  EVERY DAY), ORAL
     Route: 048
     Dates: start: 20060504, end: 20060520

REACTIONS (2)
  - EAR PAIN [None]
  - THROMBOCYTOPENIA [None]
